FAERS Safety Report 23883939 (Version 1)
Quarter: 2024Q2

REPORT INFORMATION
  Report Type: Spontaneous
  Country: US (occurrence: None)
  Receive Date: 20240521
  Receipt Date: 20240521
  Transmission Date: 20240716
  Serious: Yes (Hospitalization, Other)
  Sender: FDA-Public Use
  Company Number: None

PATIENT
  Age: 67 Year
  Sex: Female
  Weight: 58.05 kg

DRUGS (1)
  1. CARVYKTI [Suspect]
     Active Substance: CILTACABTAGENE AUTOLEUCEL
     Indication: Plasma cell myeloma
     Dosage: SINGLE INFUSION INTRAVENOUS DRIP?
     Route: 041
     Dates: start: 20230327, end: 20230327

REACTIONS (9)
  - Lymphocyte adoptive therapy [None]
  - Diarrhoea [None]
  - Nausea [None]
  - Weight decreased [None]
  - Cytomegalovirus viraemia [None]
  - Oesophageal infection [None]
  - Fungal infection [None]
  - Oesophagogastroduodenoscopy abnormal [None]
  - Toxicity to various agents [None]

NARRATIVE: CASE EVENT DATE: 20240124
